FAERS Safety Report 8126435-1 (Version None)
Quarter: 2012Q1

REPORT INFORMATION
  Report Type: 
  Country: None (occurrence: None)
  Receive Date: 20120209
  Receipt Date: 20120206
  Transmission Date: 20120608
  Serious: No
  Sender: FDA-Public Use
  Company Number: US-PFIZER INC-2012022323

PATIENT
  Sex: Male
  Weight: 108 kg

DRUGS (6)
  1. LYRICA [Suspect]
     Indication: NEURALGIA
     Dosage: 100 MG, 3X/DAY
     Route: 048
     Dates: start: 20110714
  2. FENTANYL [Concomitant]
     Dosage: 50 MCG
     Route: 062
  3. METFORMIN [Concomitant]
     Indication: DIABETES MELLITUS
     Dosage: UNK
  4. OXYCODONE [Concomitant]
     Indication: PAIN
     Dosage: 10 MG, 3X/DAY (TWO 5MG TABLETS 3X/DAY)
     Route: 048
  5. PROPRANOLOL [Concomitant]
     Indication: BLOOD PRESSURE ABNORMAL
     Dosage: UNK
  6. LYRICA [Suspect]
     Indication: PAIN IN EXTREMITY
     Dosage: 50 MG, 3X/DAY
     Route: 048
     Dates: start: 20110429, end: 20110714

REACTIONS (4)
  - DRUG INEFFECTIVE [None]
  - ABNORMAL DREAMS [None]
  - ANXIETY [None]
  - MOOD ALTERED [None]
